FAERS Safety Report 6879540-1 (Version None)
Quarter: 2010Q3

REPORT INFORMATION
  Report Type: 
  Country: None (occurrence: None)
  Receive Date: 20100728
  Receipt Date: 20100712
  Transmission Date: 20110219
  Serious: Yes (Hospitalization, Other)
  Sender: FDA-Public Use
  Company Number: PHHY2010IE04996

PATIENT
  Sex: Female

DRUGS (1)
  1. CLOZARIL [Suspect]
     Indication: SCHIZOPHRENIA
     Dosage: UNK
     Dates: start: 20021014, end: 20091218

REACTIONS (4)
  - MENTAL IMPAIRMENT [None]
  - NEUTROPENIA [None]
  - PERSECUTORY DELUSION [None]
  - WHITE BLOOD CELL COUNT DECREASED [None]
